FAERS Safety Report 16923535 (Version 1)
Quarter: 2019Q4

REPORT INFORMATION
  Report Type: Spontaneous
  Country: US (occurrence: US)
  Receive Date: 20191016
  Receipt Date: 20191016
  Transmission Date: 20200122
  Serious: No
  Sender: FDA-Public Use
  Company Number: US-SUNOVION-2019SUN004130

PATIENT
  Sex: Female

DRUGS (3)
  1. PERFOROMIST [Suspect]
     Active Substance: FORMOTEROL FUMARATE DIHYDRATE
     Route: 055
  2. SALINE [Suspect]
     Active Substance: SODIUM CHLORIDE
  3. BROVANA [Suspect]
     Active Substance: ARFORMOTEROL TARTRATE
     Dosage: UNK
     Route: 055

REACTIONS (2)
  - Dyspnoea [Unknown]
  - Lip haemorrhage [Unknown]
